FAERS Safety Report 15375519 (Version 1)
Quarter: 2018Q3

REPORT INFORMATION
  Report Type: Report from Study
  Country: FR (occurrence: FR)
  Receive Date: 20180912
  Receipt Date: 20180912
  Transmission Date: 20181010
  Serious: Yes (Other)
  Sender: FDA-Public Use
  Company Number: FR-ACCORD-071433

PATIENT

DRUGS (3)
  1. TOPIRAMATE. [Suspect]
     Active Substance: TOPIRAMATE
     Indication: GENERALISED TONIC-CLONIC SEIZURE
  2. STIRIPENTOL [Concomitant]
     Active Substance: STIRIPENTOL
     Indication: GENERALISED TONIC-CLONIC SEIZURE
  3. CLOBAZAM [Concomitant]
     Active Substance: CLOBAZAM
     Indication: GENERALISED TONIC-CLONIC SEIZURE

REACTIONS (1)
  - Rectal haemorrhage [Recovered/Resolved]
